FAERS Safety Report 6577219-7 (Version None)
Quarter: 2010Q1

REPORT INFORMATION
  Report Type: 
  Country: None (occurrence: None)
  Receive Date: 20100210
  Receipt Date: 20100204
  Transmission Date: 20100710
  Serious: Yes (Other)
  Sender: FDA-Public Use
  Company Number: CH-ROXANE LABORATORIES, INC.-2010-DE-00618GD

PATIENT

DRUGS (2)
  1. CODEINE SULFATE [Suspect]
  2. MORPHINE [Suspect]

REACTIONS (1)
  - DRUG ABUSE [None]
